FAERS Safety Report 10360567 (Version 2)
Quarter: 2014Q3

REPORT INFORMATION
  Report Type: Spontaneous
  Country: US (occurrence: US)
  Receive Date: 20140804
  Receipt Date: 20140812
  Transmission Date: 20150326
  Serious: No
  Sender: FDA-Public Use
  Company Number: US-PFIZER INC-2014214161

PATIENT
  Age: 51 Year
  Sex: Male
  Weight: 136.5 kg

DRUGS (3)
  1. VIAGRA [Suspect]
     Active Substance: SILDENAFIL CITRATE
  2. VIAGRA [Suspect]
     Active Substance: SILDENAFIL CITRATE
     Indication: ERECTILE DYSFUNCTION
     Dosage: 100 MG, AS NEEDED
     Route: 048
     Dates: start: 2013
  3. COUMADIN [Concomitant]
     Active Substance: WARFARIN SODIUM
     Dosage: UNK

REACTIONS (2)
  - Expired product administered [Unknown]
  - Drug ineffective [Unknown]
